FAERS Safety Report 16755862 (Version 1)
Quarter: 2019Q3

REPORT INFORMATION
  Report Type: Spontaneous
  Country: FR (occurrence: FR)
  Receive Date: 20190829
  Receipt Date: 20190829
  Transmission Date: 20191005
  Serious: Yes (Hospitalization)
  Sender: FDA-Public Use
  Company Number: FR-ACCORD-153117

PATIENT
  Age: 81 Year
  Sex: Male
  Weight: 51 kg

DRUGS (9)
  1. BISOCE [Suspect]
     Active Substance: BISOPROLOL
     Indication: HYPERTENSION
     Dosage: STRENGTH: 1.25 MG
     Route: 048
  2. LASILIX [Suspect]
     Active Substance: FUROSEMIDE
     Indication: HYPERTENSION
     Dosage: STRENGTH: 40 MG?SCORED TABLET
     Route: 048
     Dates: start: 20190618
  3. PRAVASTATIN. [Concomitant]
     Active Substance: PRAVASTATIN
     Route: 048
  4. CORDARONE [Concomitant]
     Active Substance: AMIODARONE HYDROCHLORIDE
     Dosage: STRENGTH: 200 MG?SCORED TABLET
     Route: 048
  5. RAMIPRIL. [Suspect]
     Active Substance: RAMIPRIL
     Indication: HYPERTENSION
     Route: 048
  6. AMLOR [Suspect]
     Active Substance: AMLODIPINE BESYLATE
     Indication: HYPERTENSION
     Dosage: STRENGTH: 5 MG
     Route: 048
     Dates: start: 20190618
  7. SINGULAIR [Concomitant]
     Active Substance: MONTELUKAST SODIUM
     Dosage: STRENGTH: 10 MG
     Route: 048
  8. PRADAXA [Concomitant]
     Active Substance: DABIGATRAN ETEXILATE MESYLATE
     Indication: ATRIAL FIBRILLATION
     Dosage: STRENGTH: 150 MG
     Route: 048
     Dates: end: 20190716
  9. SERETIDE [Concomitant]
     Active Substance: FLUTICASONE PROPIONATE\SALMETEROL XINAFOATE
     Route: 055

REACTIONS (2)
  - Fall [Unknown]
  - Bradycardia [Recovered/Resolved]

NARRATIVE: CASE EVENT DATE: 201906
